FAERS Safety Report 9588032 (Version 2)
Quarter: 2013Q4

REPORT INFORMATION
  Report Type: Spontaneous
  Country: US (occurrence: US)
  Receive Date: 20131003
  Receipt Date: 20131003
  Transmission Date: 20140711
  Serious: No
  Sender: FDA-Public Use
  Company Number: US-AMGEN-USASP2012067835

PATIENT
  Sex: Male
  Weight: 88.44 kg

DRUGS (5)
  1. ENBREL [Suspect]
     Indication: RHEUMATOID ARTHRITIS
     Dosage: 50 MG, QWK
     Route: 058
  2. COREG CR [Concomitant]
     Dosage: 10 MG, UNK
  3. AMLODIPINE [Concomitant]
     Dosage: 10 MG, UNK
  4. MULTIVITAMINS, PLAIN [Concomitant]
     Dosage: UNK
  5. PLAVIX [Concomitant]
     Dosage: 75 MG, UNK

REACTIONS (2)
  - Arthralgia [Unknown]
  - Arthritis [Unknown]
